FAERS Safety Report 23403630 (Version 1)
Quarter: 2024Q1

REPORT INFORMATION
  Report Type: Spontaneous
  Country: DK (occurrence: DK)
  Receive Date: 20240116
  Receipt Date: 20240116
  Transmission Date: 20240410
  Serious: Yes (Other)
  Sender: FDA-Public Use
  Company Number: None

PATIENT
  Age: 49 Year
  Sex: Female

DRUGS (2)
  1. HYRIMOZ [Suspect]
     Active Substance: ADALIMUMAB-ADAZ
     Indication: Uveitis
     Dosage: ADMINISTERED ONCE. STRENGTH: 40 MG
     Route: 058
     Dates: start: 20230306
  2. PREDNISOLONE [Concomitant]
     Active Substance: PREDNISOLONE
     Indication: Eye disorder
     Dosage: UNK
     Route: 065

REACTIONS (3)
  - Muscular weakness [Recovering/Resolving]
  - Neuropathy peripheral [Recovering/Resolving]
  - Paraesthesia [Recovering/Resolving]

NARRATIVE: CASE EVENT DATE: 20230306
